FAERS Safety Report 18322736 (Version 1)
Quarter: 2020Q3

REPORT INFORMATION
  Report Type: Spontaneous
  Country: NL (occurrence: NL)
  Receive Date: 20200929
  Receipt Date: 20200929
  Transmission Date: 20201103
  Serious: Yes (Life-Threatening, Other)
  Sender: FDA-Public Use
  Company Number: NL-AXELLIA-003386

PATIENT
  Age: 73 Year
  Sex: Male
  Weight: 95.9 kg

DRUGS (18)
  1. VENTOLIN [Concomitant]
     Active Substance: ALBUTEROL SULFATE
     Dosage: AEROSOL, 100 UG/DOSIS (MICROGRAM PER DOSIS)
  2. MONTELUKAST [Concomitant]
     Active Substance: MONTELUKAST SODIUM
     Dosage: 10 MG (MILLIGRAM)
  3. APIXABAN [Concomitant]
     Active Substance: APIXABAN
     Dosage: 5 MG (MILLIGRAM)
  4. FUROSEMIDE. [Concomitant]
     Active Substance: FUROSEMIDE
     Dosage: 40 MG (MILLIGRAM)
  5. PARACETAMOL [Concomitant]
     Active Substance: ACETAMINOPHEN
     Dosage: 1000 MG (MILLIGRAM)
  6. BISOPROLOL [Concomitant]
     Active Substance: BISOPROLOL
     Dosage: STRENGTH : 5 MG (MILLIGRAM)
  7. ELIGARD [Concomitant]
     Active Substance: LEUPROLIDE ACETATE
     Dosage: INJECTION POWDER 45 MG / ELIGARD INJPDR WWSP 45 MG + SOLVENT
  8. OMEPRAZOLE. [Concomitant]
     Active Substance: OMEPRAZOLE
     Dosage: 20 MG (MILLIGRAM)
  9. CIPROFLOXACIN. [Concomitant]
     Active Substance: CIPROFLOXACIN
     Dosage: 500 MG (MILLIGRAM)
  10. OXYCODONE/OXYCODONE HYDROCHLORIDE/OXYCODONE PECTINATE/OXYCODONE TEREPHTHALATE [Concomitant]
     Active Substance: OXYCODONE
     Dosage: MGA 5 MG ,BRAND NAME NOT SPECIFIED
  11. METOCLOPRAMIDE. [Concomitant]
     Active Substance: METOCLOPRAMIDE
     Dosage: 10 MG (MILLIGRAM)
  12. PRAVASTATIN. [Concomitant]
     Active Substance: PRAVASTATIN
     Dosage: 40 MG (MILLIGRAM)
  13. VANCOMYCIN [Suspect]
     Active Substance: VANCOMYCIN
     Indication: CYSTITIS
     Dosage: 3X PER DAY 1000 MG
     Dates: start: 20200912, end: 20200912
  14. TAMSULOSIN/TAMSULOSIN HYDROCHLORIDE [Concomitant]
     Active Substance: TAMSULOSIN HYDROCHLORIDE
     Dosage: 0.4 MG (MILLIGRAM)
  15. MACROGOL/MACROGOL STEARATE [Concomitant]
     Active Substance: POLYETHYLENE GLYCOLS
  16. DIGOXIN. [Concomitant]
     Active Substance: DIGOXIN
     Dosage: 0.125 MG (MILLIGRAM)
  17. FOSTER [Concomitant]
     Active Substance: BECLOMETHASONE\FORMOTEROL
     Dosage: 200 / 6UG
  18. DOXYCYCLINE. [Concomitant]
     Active Substance: DOXYCYCLINE
     Dosage: 100 MG (MILLIGRAM)

REACTIONS (3)
  - Erythema [Recovering/Resolving]
  - Atrial fibrillation [Recovered/Resolved]
  - Dyspnoea [Recovering/Resolving]

NARRATIVE: CASE EVENT DATE: 20200912
